FAERS Safety Report 10947262 (Version 4)
Quarter: 2015Q2

REPORT INFORMATION
  Report Type: Spontaneous
  Country: US (occurrence: US)
  Receive Date: 20150321
  Receipt Date: 20150525
  Transmission Date: 20150821
  Serious: No
  Sender: FDA-Public Use
  Company Number: US-JNJFOC-20150105393

PATIENT
  Age: 39 Year
  Sex: Female
  Weight: 68.04 kg

DRUGS (3)
  1. METOPROLOL [Concomitant]
     Active Substance: METOPROLOL
     Indication: HEART RATE IRREGULAR
     Route: 065
     Dates: start: 201403
  2. STELARA [Suspect]
     Active Substance: USTEKINUMAB
     Indication: PSORIASIS
     Route: 058
     Dates: start: 201206
  3. ERRIN [Concomitant]
     Active Substance: NORETHINDRONE
     Indication: PREMENSTRUAL SYNDROME
     Route: 065
     Dates: start: 201408

REACTIONS (2)
  - Needle issue [Unknown]
  - Drug dose omission [Unknown]

NARRATIVE: CASE EVENT DATE: 20150108
